FAERS Safety Report 7332754-9 (Version None)
Quarter: 2011Q1

REPORT INFORMATION
  Report Type: 
  Country: None (occurrence: None)
  Receive Date: 20110304
  Receipt Date: 20100908
  Transmission Date: 20110831
  Serious: Yes (Hospitalization, Other)
  Sender: FDA-Public Use
  Company Number: US-BAYER-201019719NA

PATIENT
  Sex: Female
  Weight: 65.76 kg

DRUGS (8)
  1. AMBRISENTAN [Concomitant]
     Dosage: DAILY DOSE 5 MG
  2. SILDENAFIL [Concomitant]
  3. YASMIN [Suspect]
     Indication: PREMENSTRUAL SYNDROME
  4. COUMADIN [Concomitant]
  5. YAZ [Suspect]
     Indication: PREMENSTRUAL SYNDROME
  6. LOVENOX [Concomitant]
  7. YAZ [Suspect]
     Indication: ACNE
     Route: 048
  8. YASMIN [Suspect]
     Indication: ACNE
     Route: 048

REACTIONS (3)
  - PULMONARY HYPERTENSION [None]
  - DEEP VEIN THROMBOSIS [None]
  - MENTAL DISORDER [None]
